FAERS Safety Report 19757928 (Version 1)
Quarter: 2021Q3

REPORT INFORMATION
  Report Type: Spontaneous
  Country: CN (occurrence: CN)
  Receive Date: 20210827
  Receipt Date: 20210827
  Transmission Date: 20211014
  Serious: Yes (Hospitalization)
  Sender: FDA-Public Use
  Company Number: CN-ASTRAZENECA-2021A686511

PATIENT
  Sex: Male
  Weight: 70 kg

DRUGS (2)
  1. ONGLYZA [Suspect]
     Active Substance: SAXAGLIPTIN HYDROCHLORIDE
     Indication: DIABETES MELLITUS
     Route: 048
     Dates: start: 2020, end: 202107
  2. METFORMIN [Concomitant]
     Active Substance: METFORMIN HYDROCHLORIDE
     Indication: TYPE 2 DIABETES MELLITUS
     Dosage: 2 TABLETS IN THE MORNING, 1 TABLET AT NOON, 2 TABLETS IN THE EVENING0.5G AS REQUIRED
     Route: 048

REACTIONS (2)
  - Drug ineffective [Unknown]
  - Weight abnormal [Recovered/Resolved]
